FAERS Safety Report 10387324 (Version 1)
Quarter: 2014Q1

REPORT INFORMATION
  Report Type: Spontaneous
  Country: US (occurrence: None)
  Receive Date: 20140306
  Receipt Date: 20140306
  Transmission Date: 20141002
  Serious: Yes (Other)
  Sender: FDA-Public Use
  Company Number: 163-21880-13051088

PATIENT
  Age: 85 Year
  Sex: Female

DRUGS (9)
  1. REVLIMID (LENALIDOMIDE) (CAPSULES) [Suspect]
     Indication: PLASMA CELL MYELOMA
     Dosage: 21 IN 21D
     Route: 048
     Dates: start: 20111021
  2. ADVIL (IBUPROFEN) [Concomitant]
  3. ASPIRIN CHILDRENS (ACETYLSALICYLIC ACID) [Concomitant]
  4. CALTRATE 600 + D (CALCITE D) [Concomitant]
  5. CENTRUM SILVER (CENTRUM SILVER) [Concomitant]
  6. CLARITIN (LORATADINE) [Concomitant]
  7. CYCLOBENZAPRINE HCL (CYCLOBENZAPRINE HYDROCHLORIDE) [Concomitant]
  8. DEXAMETHASONE (DEXAMETHASONE) [Concomitant]
  9. ENALAPRIL MALEATE (ENALAPRIL MALEATE) [Concomitant]

REACTIONS (2)
  - Haematochezia [None]
  - Diarrhoea [None]
